FAERS Safety Report 25393329 (Version 2)
Quarter: 2025Q2

REPORT INFORMATION
  Report Type: Spontaneous
  Country: AT (occurrence: AT)
  Receive Date: 20250604
  Receipt Date: 20250609
  Transmission Date: 20250716
  Serious: Yes (Death, Hospitalization, Other)
  Sender: CELLTRION
  Company Number: None

PATIENT

DRUGS (9)
  1. YUFLYMA [Suspect]
     Active Substance: ADALIMUMAB-AATY
     Indication: Product used for unknown indication
     Route: 058
     Dates: start: 20240706
  2. METHOTREXATE [Suspect]
     Active Substance: METHOTREXATE
     Indication: Product used for unknown indication
     Route: 058
     Dates: start: 20240706
  3. DICLOFENAC SODIUM\ORPHENADRINE CITRATE [Concomitant]
     Active Substance: DICLOFENAC SODIUM\ORPHENADRINE CITRATE
     Dates: start: 20241010
  4. RHEUMESSER [CYANOCOBALAMIN;DEXAMETHASONE;KEBUZONE;LIDOCAINE;SALAMIDACE [Concomitant]
     Dates: start: 20241010
  5. MELOXICAM [Concomitant]
     Active Substance: MELOXICAM
     Dates: start: 20241010
  6. PREDNISOLONE [Concomitant]
     Active Substance: PREDNISOLONE
     Dates: start: 20241010
  7. LEVETIRACETAM [Concomitant]
     Active Substance: LEVETIRACETAM
     Dates: start: 20241010
  8. ATORVAST [Concomitant]
     Dates: start: 20241010
  9. CLOPIDOGREL [Concomitant]
     Active Substance: CLOPIDOGREL BISULFATE
     Dates: start: 20241010

REACTIONS (8)
  - Acute respiratory distress syndrome [Fatal]
  - Pneumonia [Fatal]
  - Condition aggravated [Not Recovered/Not Resolved]
  - Intensive care [Unknown]
  - Oxygen saturation decreased [Unknown]
  - Inflammatory marker increased [Unknown]
  - Lung infiltration [Unknown]
  - Pain [Unknown]

NARRATIVE: CASE EVENT DATE: 20240101
